FAERS Safety Report 6647857-1 (Version None)
Quarter: 2010Q1

REPORT INFORMATION
  Report Type: 
  Country: None (occurrence: None)
  Receive Date: 20100324
  Receipt Date: 20100319
  Transmission Date: 20100710
  Serious: Yes (Death)
  Sender: FDA-Public Use
  Company Number: JP-JNJFOC-20100305681

PATIENT
  Age: 60 Year
  Sex: Male

DRUGS (6)
  1. RISPERIDONE [Suspect]
     Indication: SCHIZOPHRENIA
     Route: 048
  2. SERENACE [Suspect]
     Indication: SCHIZOPHRENIA
     Route: 048
  3. CLOFEKTON [Suspect]
     Indication: SCHIZOPHRENIA
     Route: 048
  4. PROFENAMINE [Suspect]
     Indication: PARKINSONISM
     Route: 048
  5. TASMOLIN [Suspect]
     Indication: PARKINSONISM
     Route: 048
  6. RIZE [Suspect]
     Indication: ANXIETY
     Route: 048

REACTIONS (1)
  - DEATH [None]
